FAERS Safety Report 15247670 (Version 1)
Quarter: 2018Q3

REPORT INFORMATION
  Report Type: Spontaneous
  Country: US (occurrence: US)
  Receive Date: 20180807
  Receipt Date: 20180807
  Transmission Date: 20181010
  Serious: Yes (Hospitalization, Other)
  Sender: FDA-Public Use
  Company Number: US-009507513-0901USA01627

PATIENT
  Age: 58 Year
  Sex: Female
  Weight: 74 kg

DRUGS (6)
  1. METOPROLOL. [Concomitant]
     Active Substance: METOPROLOL
     Dosage: UNK UNK, QD
  2. KEFLEX [Concomitant]
     Active Substance: CEPHALEXIN
  3. VYTORIN [Concomitant]
     Active Substance: EZETIMIBE\SIMVASTATIN
     Dosage: UNK UNK, QD
  4. CUBICIN [Suspect]
     Active Substance: DAPTOMYCIN
     Indication: OSTEOMYELITIS
     Dosage: 5.4 MG/KG, Q24H
     Route: 042
     Dates: start: 20081015, end: 20081027
  5. CUBICIN [Suspect]
     Active Substance: DAPTOMYCIN
     Dosage: 400 MG, Q24H
     Route: 042
     Dates: start: 20081015, end: 20081027
  6. MICARDIS [Concomitant]
     Active Substance: TELMISARTAN
     Dosage: UNK UNK, QD

REACTIONS (3)
  - Rhabdomyolysis [Recovered/Resolved]
  - Aspartate aminotransferase increased [Recovered/Resolved]
  - Alanine aminotransferase increased [Recovered/Resolved]

NARRATIVE: CASE EVENT DATE: 20081025
